FAERS Safety Report 16911401 (Version 1)
Quarter: 2019Q4

REPORT INFORMATION
  Report Type: Spontaneous
  Country: CA (occurrence: CA)
  Receive Date: 20191013
  Receipt Date: 20191013
  Transmission Date: 20200122
  Serious: Yes (Life-Threatening, Hospitalization)
  Sender: FDA-Public Use
  Company Number: CA-NOVOPROD-689069

PATIENT
  Age: 41 Year
  Sex: Female

DRUGS (4)
  1. NOVORAPID [Suspect]
     Active Substance: INSULIN ASPART
     Indication: PRODUCT USED FOR UNKNOWN INDICATION
     Dosage: UNK
     Route: 065
  2. GLUCOSE [Suspect]
     Active Substance: DEXTROSE
     Indication: PRODUCT USED FOR UNKNOWN INDICATION
     Dosage: DOSE 2000.0 ML UNKNOW DATE 50.0 MLUNKNOW DATE 12.0 DOSAGE FORM  UNKNOW DATE
     Route: 065
  3. ZOPICLONE [Suspect]
     Active Substance: ZOPICLONE
     Indication: PRODUCT USED FOR UNKNOWN INDICATION
     Dosage: UNK
     Route: 065
  4. CLONAZEPAM. [Suspect]
     Active Substance: CLONAZEPAM
     Indication: PRODUCT USED FOR UNKNOWN INDICATION
     Dosage: 2 MG
     Route: 065

REACTIONS (8)
  - Ataxia [Unknown]
  - Hypoglycaemia [Unknown]
  - Lethargy [Unknown]
  - Blood potassium decreased [Unknown]
  - Suicide attempt [Unknown]
  - Intentional overdose [Unknown]
  - Oedema peripheral [Unknown]
  - Blood pressure decreased [Unknown]
